FAERS Safety Report 4910160-1 (Version None)
Quarter: 2006Q1

REPORT INFORMATION
  Report Type: 
  Country: None (occurrence: None)
  Receive Date: 20060209
  Receipt Date: 20060120
  Transmission Date: 20060701
  Serious: Yes (Hospitalization)
  Sender: FDA-Public Use
  Company Number: US_0510122986

PATIENT
  Age: 39 Year
  Sex: Female
  Weight: 90.2 kg

DRUGS (6)
  1. ZYPREXA [Suspect]
     Indication: BIPOLAR DISORDER
     Dosage: 15 MG, DAILY (1/D), ORAL
     Route: 048
     Dates: start: 20000201
  2. PROZAC [Concomitant]
  3. NEURONTIN [Concomitant]
  4. CELEXA [Concomitant]
  5. XANAX [Concomitant]
  6. VASOTEC [Concomitant]

REACTIONS (2)
  - DIABETES MELLITUS [None]
  - WEIGHT INCREASED [None]
